FAERS Safety Report 8610832-1 (Version None)
Quarter: 2012Q3

REPORT INFORMATION
  Report Type: 
  Country: None (occurrence: None)
  Receive Date: 20120822
  Receipt Date: 20120814
  Transmission Date: 20120928
  Serious: Yes (Hospitalization, Other)
  Sender: FDA-Public Use
  Company Number: US-AMGEN-USASP2012047198

PATIENT
  Age: 69 Year
  Sex: Male
  Weight: 88.889 kg

DRUGS (14)
  1. ARANESP [Suspect]
     Dosage: 151 MG, UNK
     Dates: start: 20120201
  2. ARANESP [Suspect]
     Dosage: 153 MG, UNK
     Dates: start: 20120313
  3. LEFLUNOMIDE [Concomitant]
     Dosage: 20 MG, QD
     Route: 048
     Dates: start: 20120103, end: 20120615
  4. EPOGEN [Suspect]
     Dosage: 21000 IU, UNK
     Route: 042
     Dates: start: 20120615, end: 20120710
  5. ARANESP [Suspect]
     Dosage: 152 MG, UNK
     Dates: start: 20120222
  6. EPOGEN [Suspect]
     Indication: RENAL FAILURE
     Dosage: UNK
     Dates: start: 20120420, end: 20120716
  7. EPOGEN [Suspect]
     Dosage: 16000 IU, UNK
     Route: 042
     Dates: start: 20120604, end: 20120611
  8. EPOGEN [Suspect]
     Dosage: 26000 IU, UNK
     Route: 042
     Dates: start: 20120711, end: 20120716
  9. ARANESP [Suspect]
     Dosage: 154 MG, UNK
     Dates: start: 20120405
  10. ALLOPURINOL [Concomitant]
     Dosage: 150 MG, QD
     Dates: start: 20120106
  11. EPOGEN [Suspect]
     Dosage: 10000 IU, UNK
     Route: 042
     Dates: start: 20120420, end: 20120503
  12. ARANESP [Suspect]
     Indication: RENAL FAILURE
     Dosage: 150 MG, Q3WK
     Dates: start: 20120112, end: 20120405
  13. EPOGEN [Suspect]
     Dosage: 11000 IU, UNK
     Route: 042
     Dates: start: 20120514, end: 20120521
  14. ARANESP [Suspect]
     Dosage: 200 MG, UNK
     Dates: start: 20120723

REACTIONS (2)
  - THERAPEUTIC RESPONSE DECREASED [None]
  - RENAL FAILURE [None]
